FAERS Safety Report 26104543 (Version 2)
Quarter: 2025Q4

REPORT INFORMATION
  Report Type: Spontaneous
  Country: EU (occurrence: EU)
  Receive Date: 20251130
  Receipt Date: 20251201
  Transmission Date: 20260118
  Serious: Yes (Hospitalization, Other)
  Sender: JOHNSON AND JOHNSON
  Company Number: EU-SANDOZ-SDZ2025PT087144

PATIENT
  Age: 76 Year
  Sex: Male

DRUGS (1)
  1. INFLIXIMAB [Suspect]
     Active Substance: INFLIXIMAB
     Indication: Crohn^s disease
     Dosage: UNK
     Route: 041

REACTIONS (2)
  - Disseminated cryptococcosis [Recovering/Resolving]
  - Infection in an immunocompromised host [Recovering/Resolving]
